FAERS Safety Report 9515059 (Version 1)
Quarter: 2013Q3

REPORT INFORMATION
  Report Type: Spontaneous
  Country: US (occurrence: None)
  Receive Date: 20130909
  Receipt Date: 20130909
  Transmission Date: 20140515
  Serious: Yes (Other)
  Sender: FDA-Public Use
  Company Number: AUR-APL-2013-07502

PATIENT
  Age: 58 Year
  Sex: Male

DRUGS (3)
  1. LISINOPRIL [Suspect]
     Indication: BLOOD PRESSURE ABNORMAL
     Dosage: (2 DOSAGE FORMS, 1 D), UNKNOWN
     Route: 048
  2. ATENOLOL [Suspect]
     Indication: HYPERTENSION
     Dosage: (25 MG, 1 D), UNKNOWN
  3. CRESTOR [Suspect]
     Indication: BLOOD CHOLESTEROL INCREASED
     Dosage: (20 MG, 1 IN D), UNKNOWN

REACTIONS (8)
  - Road traffic accident [None]
  - Aortic bypass [None]
  - Peripheral artery bypass [None]
  - Arterial therapeutic procedure [None]
  - Amnesia [None]
  - Pain [None]
  - Treatment noncompliance [None]
  - Blood cholesterol increased [None]
